FAERS Safety Report 26192382 (Version 1)
Quarter: 2025Q4

REPORT INFORMATION
  Report Type: Spontaneous
  Country: US (occurrence: US)
  Receive Date: 20251223
  Receipt Date: 20251223
  Transmission Date: 20260118
  Serious: Yes (Other)
  Sender: SANOFI AVENTIS
  Company Number: US-SA-2025SA381209

PATIENT
  Age: 36 Year
  Sex: Female

DRUGS (2)
  1. DUPIXENT [Suspect]
     Active Substance: DUPILUMAB
     Indication: Urticaria
     Dosage: 300 MG, QOW
     Route: 058
     Dates: start: 202511
  2. MOTRIN [Suspect]
     Active Substance: IBUPROFEN
     Indication: Angioedema

REACTIONS (2)
  - Angioedema [Unknown]
  - Influenza [Unknown]

NARRATIVE: CASE EVENT DATE: 20251210
